FAERS Safety Report 14845926 (Version 1)
Quarter: 2018Q2

REPORT INFORMATION
  Report Type: Spontaneous
  Country: FR (occurrence: FR)
  Receive Date: 20180504
  Receipt Date: 20180504
  Transmission Date: 20180711
  Serious: Yes (Hospitalization)
  Sender: FDA-Public Use
  Company Number: FR-MERCK KGAA-2047171

PATIENT
  Age: 50 Year
  Sex: Female

DRUGS (1)
  1. NOVOTHYROX [Suspect]
     Active Substance: LEVOTHYROXINE SODIUM
     Indication: PRODUCT USED FOR UNKNOWN INDICATION
     Dates: start: 2017

REACTIONS (17)
  - Venous thrombosis [None]
  - Arterial thrombosis [None]
  - Arthralgia [Recovered/Resolved]
  - Insomnia [None]
  - Muscle spasms [None]
  - Hypokinesia [None]
  - Fatigue [None]
  - Memory impairment [None]
  - Impaired work ability [None]
  - Blood thyroid stimulating hormone increased [None]
  - Arrhythmia [None]
  - Diarrhoea [None]
  - Blood thyroid stimulating hormone decreased [None]
  - Dizziness [None]
  - Malaise [None]
  - Apathy [None]
  - Loss of personal independence in daily activities [None]

NARRATIVE: CASE EVENT DATE: 2017
